FAERS Safety Report 5132711-7 (Version None)
Quarter: 2006Q4

REPORT INFORMATION
  Report Type: 
  Country: None (occurrence: None)
  Receive Date: 20061023
  Receipt Date: 20061019
  Transmission Date: 20070319
  Serious: Yes (Hospitalization)
  Sender: FDA-Public Use
  Company Number: US-GLAXOSMITHKLINE-A0624241A

PATIENT
  Age: 70 Year
  Sex: Female

DRUGS (10)
  1. COREG [Suspect]
     Dosage: 12.5MG TWICE PER DAY
     Route: 048
  2. ALBUTEROL [Concomitant]
  3. ZETIA [Concomitant]
  4. HYOSCYAMINE [Concomitant]
  5. PREVACID [Concomitant]
  6. ZOCOR [Concomitant]
  7. WARFARIN SODIUM [Concomitant]
  8. IRON [Concomitant]
  9. CENTRUM SILVER [Concomitant]
  10. EPOGEN [Concomitant]

REACTIONS (8)
  - CHEST DISCOMFORT [None]
  - COUGH [None]
  - DIZZINESS [None]
  - DYSGEUSIA [None]
  - GAIT DISTURBANCE [None]
  - HEART RATE IRREGULAR [None]
  - SLEEP DISORDER [None]
  - SOMNOLENCE [None]
